FAERS Safety Report 8308622-2 (Version None)
Quarter: 2012Q2

REPORT INFORMATION
  Report Type: 
  Country: None (occurrence: None)
  Receive Date: 20120424
  Receipt Date: 20120411
  Transmission Date: 20120825
  Serious: Yes (Other)
  Sender: FDA-Public Use
  Company Number: JP-ROCHE-GNE322456

PATIENT
  Age: 66 Year
  Sex: Male

DRUGS (9)
  1. WARFARIN SODIUM [Concomitant]
     Route: 048
     Dates: end: 20101031
  2. ALTEPLASE [Suspect]
     Indication: EMBOLIC STROKE
     Dosage: 37.7 ML, UNK
     Route: 042
     Dates: start: 20100924, end: 20100924
  3. WARFARIN SODIUM [Concomitant]
     Route: 048
  4. GLYCEOL [Concomitant]
     Indication: PRODUCT USED FOR UNKNOWN INDICATION
     Dosage: UNK
     Route: 041
     Dates: start: 20100927, end: 20101005
  5. WARFARIN SODIUM [Concomitant]
     Indication: PRODUCT USED FOR UNKNOWN INDICATION
     Route: 048
     Dates: start: 20101004, end: 20101022
  6. WARFARIN SODIUM [Concomitant]
     Route: 048
     Dates: end: 20101122
  7. EDARAVONE [Suspect]
     Indication: EMBOLIC STROKE
     Dosage: 60 MG, UNK
     Route: 041
     Dates: start: 20100924
  8. VALPROIC ACID [Suspect]
     Indication: PRODUCT USED FOR UNKNOWN INDICATION
     Route: 048
     Dates: start: 20100927, end: 20101005
  9. ZONISAMIDE [Concomitant]
     Dates: start: 20100927

REACTIONS (1)
  - LIVER DISORDER [None]
